FAERS Safety Report 20247527 (Version 3)
Quarter: 2022Q2

REPORT INFORMATION
  Report Type: Spontaneous
  Country: US (occurrence: US)
  Receive Date: 20211229
  Receipt Date: 20220616
  Transmission Date: 20220721
  Serious: No
  Sender: FDA-Public Use
  Company Number: US-SA-SAC20211224001078

PATIENT
  Age: 21 Year
  Sex: Female

DRUGS (9)
  1. DUPIXENT [Suspect]
     Active Substance: DUPILUMAB
     Indication: Dermatitis atopic
     Dosage: 300 MG QOW
     Route: 058
     Dates: start: 20210422
  2. DUPIXENT [Suspect]
     Active Substance: DUPILUMAB
     Indication: Asthma
  3. DUPIXENT [Suspect]
     Active Substance: DUPILUMAB
     Indication: Rheumatoid arthritis
  4. DUPIXENT [Suspect]
     Active Substance: DUPILUMAB
     Indication: Dermatitis allergic
  5. HUMIRA [Concomitant]
     Active Substance: ADALIMUMAB
     Indication: Arthritis
     Dosage: 40MG/0.4ML SYRINGEKIT
  6. BETA CAROTENE [Concomitant]
     Active Substance: BETA CAROTENE
     Dosage: UNK
  7. FISH OIL [Concomitant]
     Active Substance: FISH OIL
     Dosage: 60 MG-90MG
  8. VITAMIN C [Concomitant]
     Active Substance: ASCORBIC ACID
  9. IRON [Concomitant]
     Active Substance: IRON
     Dosage: 325(65) MG

REACTIONS (19)
  - Blister [Unknown]
  - Skin erosion [Unknown]
  - Ocular hyperaemia [Unknown]
  - Eye inflammation [Unknown]
  - Skin fissures [Unknown]
  - Pain of skin [Unknown]
  - Eye discharge [Unknown]
  - Dry skin [Unknown]
  - Skin reaction [Unknown]
  - Rash [Unknown]
  - Injection site discomfort [Unknown]
  - Urticaria [Unknown]
  - Pharyngeal swelling [Unknown]
  - Dermatitis [Unknown]
  - Rash [Unknown]
  - Injection site pain [Unknown]
  - Dermatitis atopic [Unknown]
  - Product dose omission issue [Unknown]
  - Product use in unapproved indication [Unknown]

NARRATIVE: CASE EVENT DATE: 20210422
